FAERS Safety Report 6705997-2 (Version None)
Quarter: 2010Q2

REPORT INFORMATION
  Report Type: 
  Country: None (occurrence: None)
  Receive Date: 20100429
  Receipt Date: 20100419
  Transmission Date: 20101027
  Serious: Yes (Other)
  Sender: FDA-Public Use
  Company Number: 1000013294

PATIENT
  Sex: Female

DRUGS (4)
  1. SAVELLA [Suspect]
     Indication: FIBROMYALGIA
     Dosage: 150 MG (75 MG, 2 IN 1 D)
  2. LYRICA [Suspect]
     Indication: FIBROMYALGIA
  3. SEROQUEL [Concomitant]
  4. LORTAB [Concomitant]

REACTIONS (5)
  - JAW DISORDER [None]
  - LIP SWELLING [None]
  - PAIN [None]
  - PYREXIA [None]
  - SWELLING [None]
